FAERS Safety Report 9610881 (Version 1)
Quarter: 2013Q4

REPORT INFORMATION
  Report Type: Spontaneous
  Country: US (occurrence: US)
  Receive Date: 20131009
  Receipt Date: 20131009
  Transmission Date: 20140711
  Serious: Yes (Other)
  Sender: FDA-Public Use
  Company Number: US-BAYER-2013-120939

PATIENT
  Age: 15 Year
  Sex: 0

DRUGS (1)
  1. MIDOL EXTENDED RELIEF CAPLET [Suspect]
     Dosage: 26 DF, UNK

REACTIONS (2)
  - Intentional overdose [None]
  - Vomiting [None]
